FAERS Safety Report 11890602 (Version 3)
Quarter: 2016Q1

REPORT INFORMATION
  Report Type: Spontaneous
  Country: US (occurrence: US)
  Receive Date: 20160105
  Receipt Date: 20160114
  Transmission Date: 20160526
  Serious: Yes (Hospitalization)
  Sender: FDA-Public Use
  Company Number: GXBR2015US002741

PATIENT
  Sex: Female

DRUGS (6)
  1. ATENOLOL TABLETS USP [Suspect]
     Active Substance: ATENOLOL
     Indication: MITRAL VALVE DISEASE
  2. ATENOLOL TABLETS USP [Suspect]
     Active Substance: ATENOLOL
     Indication: ARRHYTHMIA
     Dosage: 50 MG, QD
     Route: 048
     Dates: start: 1986
  3. ATENOLOL TABLETS USP [Suspect]
     Active Substance: ATENOLOL
     Indication: TACHYCARDIA
     Dosage: 50 MG, BID
     Route: 048
     Dates: end: 201507
  4. PROBIOTICS NOS [Concomitant]
     Active Substance: PROBIOTICS NOS
     Indication: SHORT-BOWEL SYNDROME
     Dosage: UNK DF, UNK
     Route: 065
  5. MULTI VIT [Concomitant]
     Indication: SHORT-BOWEL SYNDROME
     Dosage: UNK DF, UNK
     Route: 065
  6. NUTRIENTS NOS [Concomitant]
     Active Substance: UNSPECIFIED INGREDIENT
     Indication: SHORT-BOWEL SYNDROME
     Dosage: UNK DF, UNK
     Route: 065

REACTIONS (4)
  - Extrasystoles [Recovering/Resolving]
  - Arrhythmia [Recovering/Resolving]
  - Heart rate increased [Recovering/Resolving]
  - Drug ineffective [Unknown]
